FAERS Safety Report 16044111 (Version 1)
Quarter: 2019Q1

REPORT INFORMATION
  Report Type: Report from Study
  Country: GB (occurrence: GB)
  Receive Date: 20190306
  Receipt Date: 20190306
  Transmission Date: 20190418
  Serious: Yes (Other)
  Sender: FDA-Public Use
  Company Number: PHHY2019GB023873

PATIENT
  Sex: Male

DRUGS (1)
  1. KISQALI [Suspect]
     Active Substance: RIBOCICLIB
     Indication: BREAST CANCER
     Dosage: 600 MG, QD
     Route: 048
     Dates: start: 20190117, end: 20190205

REACTIONS (8)
  - Myalgia [Unknown]
  - Fatigue [Unknown]
  - Sinus bradycardia [Unknown]
  - Product use issue [Unknown]
  - Hepatotoxicity [Not Recovered/Not Resolved]
  - Cardiotoxicity [Unknown]
  - Lower respiratory tract infection [Not Recovered/Not Resolved]
  - Full blood count decreased [Unknown]
